FAERS Safety Report 11369117 (Version 2)
Quarter: 2015Q4

REPORT INFORMATION
  Report Type: Spontaneous
  Country: CA (occurrence: CA)
  Receive Date: 20150812
  Receipt Date: 20151208
  Transmission Date: 20160304
  Serious: Yes (Death)
  Sender: FDA-Public Use
  Company Number: CA-UNITED THERAPEUTICS-UNT-2015-009669

PATIENT
  Age: 68 Year
  Sex: Female

DRUGS (1)
  1. REMODULIN [Suspect]
     Active Substance: TREPROSTINIL
     Indication: PULMONARY ARTERIAL HYPERTENSION
     Dosage: UNK
     Route: 058
     Dates: start: 20120514, end: 20150726

REACTIONS (1)
  - Death [Fatal]

NARRATIVE: CASE EVENT DATE: 20150726
